FAERS Safety Report 7328172-X (Version None)
Quarter: 2011Q1

REPORT INFORMATION
  Report Type: 
  Country: None (occurrence: None)
  Receive Date: 20110303
  Receipt Date: 20110222
  Transmission Date: 20110831
  Serious: Yes (Hospitalization)
  Sender: FDA-Public Use
  Company Number: JP-ELI_LILLY_AND_COMPANY-JP201011004660

PATIENT
  Age: 85 Year
  Sex: Male

DRUGS (2)
  1. HORMONES [Concomitant]
     Indication: PROSTATIC OPERATION
  2. FORTEO [Suspect]
     Route: 058
     Dates: start: 20101023

REACTIONS (3)
  - CATARACT [None]
  - INJECTION SITE MACULE [None]
  - FEELING ABNORMAL [None]
